FAERS Safety Report 8798448 (Version 2)
Quarter: 2012Q4

REPORT INFORMATION
  Report Type: 
  Country: US (occurrence: US)
  Receive Date: 20120920
  Receipt Date: 20121024
  Transmission Date: 20130627
  Serious: Yes (Other)
  Sender: FDA-Public Use
  Company Number: US-BAYER-2012-096528

PATIENT
  Age: 31 Year
  Sex: Female
  Weight: 52.15 kg

DRUGS (6)
  1. MIRENA [Suspect]
     Indication: BIRTH CONTROL
     Dosage: 20 mcg/24hr, CONT
     Route: 015
     Dates: start: 20120911, end: 20120916
  2. ADVAIR [Concomitant]
     Indication: ASTHMA
     Dosage: 250/50, everyday
  3. WELLBUTRIN XL [Concomitant]
     Indication: DEPRESSION
     Dosage: 300 mg, everyday
     Dates: start: 2007
  4. DEPAKOTE [Concomitant]
     Indication: BIPOLAR DISORDER
     Dosage: 250 mg, BID
     Dates: start: 2012
  5. ZYRTEC [Concomitant]
     Indication: ALLERGY
     Dosage: 10 mg, everyday
  6. MULTIVITAMIN [Concomitant]
     Indication: NUTRITIONAL SUPPORT
     Dosage: UNK

REACTIONS (2)
  - Post procedural haemorrhage [Recovering/Resolving]
  - Abdominal pain [Recovering/Resolving]
